FAERS Safety Report 24417825 (Version 2)
Quarter: 2024Q4

REPORT INFORMATION
  Report Type: Spontaneous
  Country: US (occurrence: US)
  Receive Date: 20241009
  Receipt Date: 20241111
  Transmission Date: 20250114
  Serious: No
  Sender: PFIZER
  Company Number: US-PFIZER INC-202400271747

PATIENT
  Age: 50 Year
  Sex: Female
  Weight: 61.678 kg

DRUGS (1)
  1. TIVDAK [Suspect]
     Active Substance: TISOTUMAB VEDOTIN-TFTV
     Dosage: 120 MG, EVERY 3 WEEKS
     Route: 042

REACTIONS (1)
  - Weight increased [Unknown]
